FAERS Safety Report 7818535-8 (Version None)
Quarter: 2011Q4

REPORT INFORMATION
  Report Type: 
  Country: None (occurrence: None)
  Receive Date: 20111017
  Receipt Date: 20111011
  Transmission Date: 20120403
  Serious: Yes (Hospitalization)
  Sender: FDA-Public Use
  Company Number: JP-ROCHE-690572

PATIENT
  Sex: Female

DRUGS (44)
  1. ACTEMRA [Suspect]
     Route: 041
     Dates: start: 20100203, end: 20100203
  2. ACTEMRA [Suspect]
     Route: 041
     Dates: start: 20101208, end: 20101208
  3. ACTEMRA [Suspect]
     Route: 041
     Dates: start: 20110302, end: 20110302
  4. ALENDRONATE SODIUM [Concomitant]
     Dosage: DRUG REPORTED AS UNKNOWNDRUG
     Route: 048
  5. DICLOFENAC [Concomitant]
     Route: 048
  6. ACTEMRA [Suspect]
     Route: 041
     Dates: start: 20081105, end: 20081105
  7. ACTEMRA [Suspect]
     Route: 041
     Dates: start: 20090401, end: 20090401
  8. ACTEMRA [Suspect]
     Route: 041
     Dates: start: 20090916, end: 20090916
  9. ACTEMRA [Suspect]
     Route: 041
     Dates: start: 20110427, end: 20110427
  10. ACTEMRA [Suspect]
     Route: 041
     Dates: start: 20110622, end: 20110622
  11. PREDNISOLONE [Suspect]
     Route: 048
     Dates: start: 20100304, end: 20100331
  12. ACTEMRA [Suspect]
     Route: 041
     Dates: start: 20090527, end: 20090527
  13. ACTEMRA [Suspect]
     Route: 041
     Dates: start: 20100106, end: 20100106
  14. ACTEMRA [Suspect]
     Route: 041
     Dates: start: 20100721, end: 20100721
  15. ACTEMRA [Suspect]
     Route: 041
  16. ACTEMRA [Suspect]
     Route: 041
     Dates: start: 20081008, end: 20081008
  17. ACTEMRA [Suspect]
     Route: 041
     Dates: start: 20091014, end: 20091014
  18. ACTEMRA [Suspect]
     Route: 041
     Dates: start: 20101013, end: 20101013
  19. PREDNISOLONE [Suspect]
     Indication: RHEUMATOID ARTHRITIS
     Dosage: DOSE FORM: PERORAL AGENT
     Route: 048
  20. PREDNISOLONE [Suspect]
     Route: 048
     Dates: start: 20081204, end: 20090204
  21. PREDNISOLONE [Suspect]
     Route: 048
     Dates: start: 20090205, end: 20100303
  22. ACTEMRA [Suspect]
     Indication: RHEUMATOID ARTHRITIS
     Route: 041
     Dates: start: 20080813, end: 20080813
  23. ACTEMRA [Suspect]
     Route: 041
     Dates: start: 20090107, end: 20090107
  24. ACTEMRA [Suspect]
     Route: 041
     Dates: start: 20090204, end: 20090204
  25. ACTEMRA [Suspect]
     Route: 041
     Dates: start: 20100428, end: 20100428
  26. ACTEMRA [Suspect]
     Route: 041
     Dates: start: 20100818, end: 20100818
  27. ACTEMRA [Suspect]
     Route: 041
     Dates: start: 20110202, end: 20110202
  28. ACTEMRA [Suspect]
     Route: 041
     Dates: start: 20110330, end: 20110330
  29. ACTEMRA [Suspect]
     Route: 041
     Dates: start: 20090304, end: 20090304
  30. ACTEMRA [Suspect]
     Route: 041
     Dates: start: 20090428, end: 20090428
  31. ACTEMRA [Suspect]
     Route: 041
     Dates: start: 20091111, end: 20091111
  32. ACTEMRA [Suspect]
     Route: 041
     Dates: start: 20100331, end: 20100331
  33. ACTEMRA [Suspect]
     Route: 041
     Dates: start: 20100526, end: 20100526
  34. ACTEMRA [Suspect]
     Route: 041
     Dates: start: 20100623, end: 20100623
  35. ACTEMRA [Suspect]
     Route: 041
     Dates: start: 20100915, end: 20100915
  36. ACTEMRA [Suspect]
     Route: 041
     Dates: start: 20110525, end: 20110525
  37. PREDNISOLONE [Suspect]
     Route: 048
  38. METHOTREXATE [Suspect]
     Indication: RHEUMATOID ARTHRITIS
     Dosage: DOSE FORM: PERORAL AGENT, DRUG REPORTED AS UNKNOWN DRUG
     Route: 048
  39. CYTOTEC [Concomitant]
     Route: 048
  40. ACTEMRA [Suspect]
     Route: 041
     Dates: start: 20090805, end: 20090805
  41. ACTEMRA [Suspect]
     Route: 041
     Dates: start: 20100303, end: 20100303
  42. ACTEMRA [Suspect]
     Route: 041
     Dates: start: 20080910, end: 20080910
  43. ACTEMRA [Suspect]
     Route: 041
     Dates: start: 20081203, end: 20081203
  44. ACTEMRA [Suspect]
     Route: 041
     Dates: start: 20110105, end: 20110105

REACTIONS (6)
  - UPPER RESPIRATORY TRACT INFLAMMATION [None]
  - ALANINE AMINOTRANSFERASE INCREASED [None]
  - HYPERCHOLESTEROLAEMIA [None]
  - ASPARTATE AMINOTRANSFERASE INCREASED [None]
  - HYPERTENSION [None]
  - IVTH NERVE PARALYSIS [None]
